FAERS Safety Report 12380063 (Version 1)
Quarter: 2016Q2

REPORT INFORMATION
  Report Type: Spontaneous
  Country: US (occurrence: None)
  Receive Date: 20160517
  Receipt Date: 20160517
  Transmission Date: 20160815
  Serious: Yes (Hospitalization)
  Sender: FDA-Public Use
  Company Number: None

PATIENT
  Age: 40 Year
  Sex: Male
  Weight: 86.18 kg

DRUGS (1)
  1. PEPCID AC MAXIMUM STRENGTH [Suspect]
     Active Substance: FAMOTIDINE
     Indication: DYSPEPSIA
     Dosage: 1 TABLET(S) ONCE A DAY TAKEN BY MOUTH
     Route: 048
     Dates: start: 20151205, end: 20151205

REACTIONS (6)
  - Dizziness [None]
  - Dysstasia [None]
  - Nausea [None]
  - Speech disorder [None]
  - Mental impairment [None]
  - Presyncope [None]

NARRATIVE: CASE EVENT DATE: 20151205
